FAERS Safety Report 9272994 (Version 1)
Quarter: 2013Q2

REPORT INFORMATION
  Report Type: Report from Study
  Country: CN (occurrence: CN)
  Receive Date: 20130506
  Receipt Date: 20130506
  Transmission Date: 20140414
  Serious: Yes (Hospitalization)
  Sender: FDA-Public Use
  Company Number: CN-BAXTER-2013BAX015777

PATIENT
  Sex: Female
  Weight: 60 kg

DRUGS (7)
  1. PERITONEAL DIALYSIS SOLUTION (LACTATE- G 1.5%) [Suspect]
     Indication: PERITONEAL DIALYSIS
     Route: 033
  2. HUMALOG [Concomitant]
     Indication: DIABETES MELLITUS
     Dosage: 46U
     Route: 048
  3. CLONIDINE [Concomitant]
     Indication: HYPERTENSION
     Route: 048
  4. PLENDIL [Concomitant]
     Indication: HYPERTENSION
     Route: 048
  5. EPIAO [Concomitant]
     Indication: ANAEMIA
     Route: 058
     Dates: start: 20121003, end: 20121009
  6. FERROUS SUCCINATE [Concomitant]
     Indication: ANAEMIA
     Route: 042
     Dates: start: 20121003, end: 20121009
  7. CALCIUM CARBONATE [Concomitant]
     Indication: MINERAL DEFICIENCY
     Route: 048
     Dates: start: 20121003, end: 20121009

REACTIONS (1)
  - Vomiting [Recovered/Resolved]
